FAERS Safety Report 7122682-6 (Version None)
Quarter: 2010Q4

REPORT INFORMATION
  Report Type: 
  Country: None (occurrence: None)
  Receive Date: 20101124
  Receipt Date: 20101110
  Transmission Date: 20110411
  Serious: Yes (Hospitalization)
  Sender: FDA-Public Use
  Company Number: GB-BAUSCH-2010BL006416

PATIENT
  Age: 48 Year
  Sex: Female
  Weight: 66 kg

DRUGS (10)
  1. DEXAMETHASONE [Suspect]
     Indication: MULTIPLE MYELOMA
     Route: 048
     Dates: start: 20100730, end: 20100921
  2. VELCADE [Suspect]
     Indication: MULTIPLE MYELOMA
     Route: 042
     Dates: start: 20100730, end: 20100921
  3. ACYCLOVIR [Concomitant]
     Indication: HEPATITIS
  4. ALLOPURINOL [Concomitant]
  5. DOCUSATE SODIUM [Concomitant]
  6. ENTECAVIR [Concomitant]
     Indication: HEPATITIS
  7. LANSOPRAZOLE [Concomitant]
     Indication: PROPHYLAXIS
  8. MORPHINE SULFATE [Concomitant]
     Indication: PAIN
  9. ORAMORPH /UNK/ [Concomitant]
  10. SENNA [Concomitant]

REACTIONS (1)
  - NEUTROPENIC SEPSIS [None]
